FAERS Safety Report 9172998 (Version 1)
Quarter: 2013Q1

REPORT INFORMATION
  Report Type: Spontaneous
  Country: US (occurrence: None)
  Receive Date: 20130319
  Receipt Date: 20130319
  Transmission Date: 20140127
  Serious: Yes (Other)
  Sender: FDA-Public Use
  Company Number: None

PATIENT
  Age: 59 Year
  Sex: Female
  Weight: 49.9 kg

DRUGS (2)
  1. BUPROPION [Suspect]
     Dosage: ONE PER DAY PO
     Route: 048
     Dates: start: 20060804, end: 20130313
  2. ZOLPIDEM [Suspect]
     Dosage: ONE PER NIGHT PO
     Route: 048
     Dates: start: 20060804, end: 20130313

REACTIONS (4)
  - Musculoskeletal stiffness [None]
  - Eye disorder [None]
  - Urinary tract disorder [None]
  - Bacterial infection [None]
